FAERS Safety Report 19432190 (Version 1)
Quarter: 2021Q2

REPORT INFORMATION
  Report Type: Spontaneous
  Country: CA (occurrence: CA)
  Receive Date: 20210618
  Receipt Date: 20210618
  Transmission Date: 20210717
  Serious: Yes (Other)
  Sender: FDA-Public Use
  Company Number: CA-TEVA-2021-CA-1922111

PATIENT
  Age: 9 Year
  Sex: Male
  Weight: 23 kg

DRUGS (5)
  1. ZOLEDRONIC ACID [Suspect]
     Active Substance: ZOLEDRONIC ACID
     Indication: OSTEOPOROSIS
     Route: 042
  2. CALCIUM [Concomitant]
     Active Substance: CALCIUM
  3. DEFLAZACORT [Concomitant]
     Active Substance: DEFLAZACORT
  4. GIVINOSTAT. [Concomitant]
     Active Substance: GIVINOSTAT
  5. VITAMIN D [Concomitant]
     Active Substance: VITAMIN D NOS

REACTIONS (5)
  - Hypophagia [Unknown]
  - Hypophosphataemia [Unknown]
  - Fatigue [Unknown]
  - Haematuria [Unknown]
  - Haemoglobinuria [Unknown]
